FAERS Safety Report 18343280 (Version 1)
Quarter: 2020Q4

REPORT INFORMATION
  Report Type: Spontaneous
  Country: US (occurrence: US)
  Receive Date: 20201005
  Receipt Date: 20201005
  Transmission Date: 20210113
  Serious: Yes (Hospitalization)
  Sender: FDA-Public Use
  Company Number: US-MYLANLABS-2020M1083903

PATIENT
  Age: 20 Year
  Sex: Male

DRUGS (1)
  1. LIOTHYRONINE [Suspect]
     Active Substance: LIOTHYRONINE
     Indication: THYROID HORMONE REPLACEMENT THERAPY
     Dosage: HE WAS PRESCRIBED COMPOUNDED ORAL LIOTHYRONINE 10MICROG CAPSULES...
     Route: 048

REACTIONS (6)
  - Overdose [Recovered/Resolved]
  - Blood creatine phosphokinase increased [Recovered/Resolved]
  - Hyperthyroidism [Recovered/Resolved]
  - Product preparation error [Unknown]
  - Troponin increased [Recovered/Resolved]
  - Blood creatine phosphokinase MB increased [Recovered/Resolved]
